FAERS Safety Report 6752738-9 (Version None)
Quarter: 2010Q2

REPORT INFORMATION
  Report Type: 
  Country: None (occurrence: None)
  Receive Date: 20100528
  Receipt Date: 20100513
  Transmission Date: 20101027
  Serious: Yes (Other)
  Sender: FDA-Public Use
  Company Number: AUR-APL-2010-01049

PATIENT
  Sex: Female

DRUGS (3)
  1. GLYBURIDE [Suspect]
     Indication: DIABETES MELLITUS
  2. GLYNASE [Suspect]
     Indication: DIABETES MELLITUS
     Dosage: 1.5MG, QD
     Dates: start: 19920101
  3. PENICILLIN [Concomitant]

REACTIONS (11)
  - AMNESIA [None]
  - ARTHRITIS [None]
  - ARTHROPOD STING [None]
  - ASTHMA [None]
  - BLOOD GLUCOSE INCREASED [None]
  - HEADACHE [None]
  - INFECTION PARASITIC [None]
  - MALAISE [None]
  - MUSCLE SPASMS [None]
  - THYROID DISORDER [None]
  - UNEVALUABLE EVENT [None]
